FAERS Safety Report 10232729 (Version 4)
Quarter: 2015Q4

REPORT INFORMATION
  Report Type: Spontaneous
  Country: CA (occurrence: CA)
  Receive Date: 20140612
  Receipt Date: 20151231
  Transmission Date: 20160304
  Serious: No
  Sender: FDA-Public Use
  Company Number: PHHY2014CA071634

PATIENT
  Age: 39 Year
  Sex: Female

DRUGS (3)
  1. NEORAL [Suspect]
     Active Substance: CYCLOSPORINE
     Indication: HEART AND LUNG TRANSPLANT
     Dosage: 275 MG, DAILY
     Route: 065
  2. NEORAL [Suspect]
     Active Substance: CYCLOSPORINE
     Indication: IMMUNOSUPPRESSION
  3. PREDNISONE. [Suspect]
     Active Substance: PREDNISONE
     Indication: IMMUNOSUPPRESSION
     Dosage: UNK
     Route: 065

REACTIONS (4)
  - Immunosuppressant drug level decreased [Unknown]
  - Normal newborn [Unknown]
  - Blood creatinine decreased [Unknown]
  - Maternal exposure during pregnancy [Unknown]
